FAERS Safety Report 20196654 (Version 3)
Quarter: 2022Q1

REPORT INFORMATION
  Report Type: Other
  Country: US (occurrence: US)
  Receive Date: 20211216
  Receipt Date: 20220204
  Transmission Date: 20220423
  Serious: Yes (Hospitalization)
  Sender: FDA-Public Use
  Company Number: US-NEUROCRINE BIOSCIENCES INC.-2021NBI07153

PATIENT

DRUGS (20)
  1. INGREZZA [Suspect]
     Active Substance: VALBENAZINE
     Indication: Tardive dyskinesia
     Dosage: 40 MILLIGRAM, QD
     Route: 048
     Dates: start: 20211018
  2. TYLENOL [Concomitant]
     Active Substance: ACETAMINOPHEN
     Dosage: UNK, PRN
  3. ALBUTEROL SULFATE [Concomitant]
     Active Substance: ALBUTEROL SULFATE
     Dosage: UNK UNK, PRN
  4. BENZTROPINE [Concomitant]
     Active Substance: BENZTROPINE
     Dosage: 1 IN THE MORNING
  5. VITAMIN B3 [Concomitant]
     Active Substance: NIACIN
     Dosage: 1 TABLET, QD (IN THE MORNING)
  6. FUROSEMIDE [Concomitant]
     Active Substance: FUROSEMIDE
     Dosage: UNK, QD (IN THE MORNING)
  7. GABAPENTIN [Concomitant]
     Active Substance: GABAPENTIN
     Dosage: UNK, BID (MORNING AND BEDTIME)
  8. HYDROXYZINE [Concomitant]
     Active Substance: HYDROXYZINE HYDROCHLORIDE
     Dosage: UNK, PRN
  9. LEVETIRACETAM [Concomitant]
     Active Substance: LEVETIRACETAM
     Dosage: UNK, BID (IN THE MORNING AND AT BEDTIME)
  10. MELATONIN [Concomitant]
     Active Substance: MELATONIN
     Dosage: UNK, PRN
  11. MEMANTINE [Concomitant]
     Active Substance: MEMANTINE
     Dosage: UNK, BID (AT MORNING AND BEDTIME)
  12. NORTRIPTYLINE [Concomitant]
     Active Substance: NORTRIPTYLINE
     Dosage: UNK, QHS
  13. OMEPRAZOLE [Concomitant]
     Active Substance: OMEPRAZOLE
     Dosage: UNK, QD (MORNING)
  14. POTASSIUM CHLORIDE [Concomitant]
     Active Substance: POTASSIUM CHLORIDE
     Dosage: UNK, QD (MORNING)
  15. ZOLOFT [Concomitant]
     Active Substance: SERTRALINE HYDROCHLORIDE
     Dosage: UNK, QD (MORNING)
  16. VITAMINS [Concomitant]
     Active Substance: VITAMINS
     Dosage: UNK, QD (MORNING)
  17. TRAMADOL [Concomitant]
     Active Substance: TRAMADOL
     Dosage: UNK, PRN
  18. RISPERIDONE [Concomitant]
     Active Substance: RISPERIDONE
     Dosage: UNK, TID
  19. TRAZODONE [Concomitant]
     Active Substance: TRAZODONE HYDROCHLORIDE
     Dosage: UNK
  20. FLUTICASONE [Concomitant]
     Active Substance: FLUTICASONE
     Dosage: UNK, QD (MORNING)
     Route: 045

REACTIONS (3)
  - Gait disturbance [Recovering/Resolving]
  - Fall [Recovered/Resolved]
  - Seizure [Recovered/Resolved]
